FAERS Safety Report 23951362 (Version 6)
Quarter: 2024Q4

REPORT INFORMATION
  Report Type: Spontaneous
  Country: ES (occurrence: ES)
  Receive Date: 20240607
  Receipt Date: 20241011
  Transmission Date: 20250115
  Serious: No
  Sender: PFIZER
  Company Number: ES-PFIZER INC-PV202400064755

PATIENT
  Age: 5 Year
  Sex: Female
  Weight: 19.6 kg

DRUGS (1)
  1. NGENLA [Suspect]
     Active Substance: SOMATROGON-GHLA
     Indication: Growth hormone deficiency
     Dosage: 13 MG, WEEKLY
     Route: 030
     Dates: start: 202310, end: 20240416

REACTIONS (4)
  - Enlarged clitoris [Recovered/Resolved with Sequelae]
  - Pruritus [Recovered/Resolved with Sequelae]
  - Injection site pain [Unknown]
  - Off label use [Unknown]

NARRATIVE: CASE EVENT DATE: 20231001
